FAERS Safety Report 14475038 (Version 1)
Quarter: 2018Q1

REPORT INFORMATION
  Report Type: Spontaneous
  Country: US (occurrence: US)
  Receive Date: 20180131
  Receipt Date: 20180131
  Transmission Date: 20180509
  Serious: Yes (Life-Threatening)
  Sender: FDA-Public Use
  Company Number: None

PATIENT
  Age: 76 Year
  Sex: Female
  Weight: 62.6 kg

DRUGS (10)
  1. COPANLISIB [Suspect]
     Active Substance: COPANLISIB
     Indication: DIFFUSE LARGE B-CELL LYMPHOMA
     Dosage: ?          OTHER FREQUENCY:D1,8,15 Q28D;?
     Route: 041
  2. CALCIUM 600 + VITAMIN D [Concomitant]
  3. GRANISETRON [Concomitant]
     Active Substance: GRANISETRON
  4. PREDNISONE. [Concomitant]
     Active Substance: PREDNISONE
  5. LISINOPRIL. [Concomitant]
     Active Substance: LISINOPRIL
  6. FENOFIBRATE. [Concomitant]
     Active Substance: FENOFIBRATE
  7. DEXAMETHASON [Concomitant]
     Active Substance: DEXAMETHASONE
  8. AMLODIPINE BESYLATE. [Concomitant]
     Active Substance: AMLODIPINE BESYLATE
  9. TETRAHYDROZOLINE HCL EYE DROPS [Concomitant]
  10. TYLENOL [Concomitant]
     Active Substance: ACETAMINOPHEN

REACTIONS (2)
  - Therapy cessation [None]
  - Hypertension [None]

NARRATIVE: CASE EVENT DATE: 20180130
